FAERS Safety Report 7732611-X (Version None)
Quarter: 2011Q3

REPORT INFORMATION
  Report Type: 
  Country: None (occurrence: None)
  Receive Date: 20110906
  Receipt Date: 20110824
  Transmission Date: 20111222
  Serious: Yes (Other)
  Sender: FDA-Public Use
  Company Number: US-BAYER-2011-069546

PATIENT
  Age: 29 Year
  Sex: Female

DRUGS (5)
  1. MIRENA [Suspect]
     Indication: CONTRACEPTION
     Dosage: 20 ?G/D, CONT
     Route: 015
     Dates: start: 20101226, end: 20110727
  2. LUVOX [Concomitant]
     Dosage: 50 MG, BID
     Dates: start: 20110428
  3. WELLBUTRIN [Concomitant]
  4. MIRENA [Suspect]
     Dosage: UNK
  5. WELLBUTRIN [Concomitant]
     Dosage: 150 MG, UNK

REACTIONS (6)
  - DEVICE EXPULSION [None]
  - MEDICAL DEVICE PAIN [None]
  - VAGINAL HAEMORRHAGE [None]
  - MENOMETRORRHAGIA [None]
  - ABDOMINAL PAIN [None]
  - PATIENT-DEVICE INCOMPATIBILITY [None]
